FAERS Safety Report 21890056 (Version 1)
Quarter: 2023Q1

REPORT INFORMATION
  Report Type: Spontaneous
  Country: TR (occurrence: TR)
  Receive Date: 20230120
  Receipt Date: 20230120
  Transmission Date: 20230418
  Serious: Yes (Other)
  Sender: FDA-Public Use
  Company Number: TR-SUN PHARMACEUTICAL INDUSTRIES LTD-2023RR-374100

PATIENT
  Age: 18 Year
  Sex: Female

DRUGS (5)
  1. CARBAMAZEPINE [Suspect]
     Active Substance: CARBAMAZEPINE
     Indication: Epilepsy
     Dosage: UNK
     Route: 065
  2. PANTOPRAZOLE [Suspect]
     Active Substance: PANTOPRAZOLE
     Indication: Product used for unknown indication
     Dosage: UNK
     Route: 065
  3. ETODOLAC [Suspect]
     Active Substance: ETODOLAC
     Indication: Product used for unknown indication
     Dosage: UNK
     Route: 065
  4. CEFOPERAZONE\SULBACTAM [Suspect]
     Active Substance: CEFOPERAZONE\SULBACTAM
     Indication: Product used for unknown indication
     Dosage: UNK
     Route: 065
  5. METHYLPREDNISOLONE [Suspect]
     Active Substance: METHYLPREDNISOLONE
     Indication: Drug reaction with eosinophilia and systemic symptoms
     Dosage: 60 MILLIGRAM, DAILY(1 MG/KG/DAY)
     Route: 042

REACTIONS (2)
  - Drug ineffective [Unknown]
  - Drug reaction with eosinophilia and systemic symptoms [Unknown]
